FAERS Safety Report 6031760-4 (Version None)
Quarter: 2009Q1

REPORT INFORMATION
  Report Type: 
  Country: None (occurrence: None)
  Receive Date: 20090108
  Receipt Date: 20081218
  Transmission Date: 20090719
  Serious: Yes (Hospitalization)
  Sender: FDA-Public Use
  Company Number: JP-MERCK-0805USA05529

PATIENT
  Age: 84 Year
  Sex: Female

DRUGS (10)
  1. FOSAMAX [Suspect]
     Indication: OSTEOPOROSIS
     Route: 048
     Dates: start: 20070124, end: 20080318
  2. NORVASC [Concomitant]
     Route: 048
  3. FERO-GRADUMET [Concomitant]
     Route: 048
  4. PLAVIX [Concomitant]
     Route: 048
  5. PEPCID RPD [Concomitant]
     Route: 048
  6. KALIMATE [Concomitant]
     Route: 048
  7. SERMION [Concomitant]
     Route: 048
  8. APLACE [Concomitant]
     Route: 048
  9. LUVOX [Concomitant]
     Route: 048
  10. MOBIC [Concomitant]
     Route: 048

REACTIONS (1)
  - OSTEITIS [None]
